FAERS Safety Report 18813713 (Version 6)
Quarter: 2021Q2

REPORT INFORMATION
  Report Type: Report from Study
  Country: US (occurrence: US)
  Receive Date: 20210201
  Receipt Date: 20210409
  Transmission Date: 20210717
  Serious: No
  Sender: FDA-Public Use
  Company Number: US-DSJP-DSU-2021-102197

PATIENT
  Age: 32 Year
  Sex: Male

DRUGS (1)
  1. PEXIDARTINIB [Suspect]
     Active Substance: PEXIDARTINIB
     Indication: SYNOVITIS
     Dosage: 400 MG, BID
     Route: 048
     Dates: start: 20210108, end: 202103

REACTIONS (10)
  - Dysgeusia [Unknown]
  - Aspartate aminotransferase increased [Unknown]
  - Blood lactate dehydrogenase increased [Unknown]
  - Hand dermatitis [Unknown]
  - Pruritus [Recovered/Resolved]
  - Skin discolouration [Unknown]
  - Hair colour changes [Unknown]
  - Hunger [Recovered/Resolved]
  - Alanine aminotransferase increased [Unknown]
  - Blood calcium decreased [Recovered/Resolved]

NARRATIVE: CASE EVENT DATE: 2021
